FAERS Safety Report 8163877 (Version 2)
Quarter: 2013Q4

REPORT INFORMATION
  Report Type: Report from Study
  Country: US (occurrence: US)
  Receive Date: 20110930
  Receipt Date: 20131220
  Transmission Date: 20140711
  Serious: Yes (Other)
  Sender: FDA-Public Use
  Company Number: US-ASTRAZENECA-2010SE55745

PATIENT
  Age: 59 Year
  Sex: Female
  Weight: 73.5 kg

DRUGS (4)
  1. ARIMIDEX [Suspect]
     Indication: BREAST CANCER
     Route: 048
     Dates: start: 2010, end: 20131212
  2. ATENOLOL [Suspect]
     Indication: HYPERTENSION
     Route: 048
     Dates: start: 2007
  3. CALCIUM [Concomitant]
     Indication: RADIATION OSTEITIS
     Route: 048
  4. VITAMIN D [Concomitant]
     Indication: RADIATION OSTEITIS
     Route: 048

REACTIONS (5)
  - Breast cancer female [Unknown]
  - Memory impairment [Unknown]
  - Adverse drug reaction [Unknown]
  - Fluid retention [Not Recovered/Not Resolved]
  - Drug dose omission [Not Recovered/Not Resolved]
